FAERS Safety Report 9470909 (Version 3)
Quarter: 2013Q4

REPORT INFORMATION
  Report Type: Spontaneous
  Country: US (occurrence: US)
  Receive Date: 20130822
  Receipt Date: 20131114
  Transmission Date: 20140711
  Serious: Yes (Hospitalization, Other)
  Sender: FDA-Public Use
  Company Number: US-009507513-1308USA009047

PATIENT
  Age: 22 Year
  Sex: Female
  Weight: 60.77 kg

DRUGS (1)
  1. IMPLANON [Suspect]
     Indication: CONTRACEPTION
     Dosage: ETONOGESTREL IMPLANT 68
     Route: 059
     Dates: start: 20110825, end: 20130906

REACTIONS (7)
  - Head injury [Unknown]
  - Road traffic accident [Unknown]
  - Injury [Unknown]
  - Surgery [Unknown]
  - Upper limb fracture [Unknown]
  - Vaginal haemorrhage [Recovered/Resolved]
  - Drug effect decreased [Unknown]
